FAERS Safety Report 6841385-6 (Version None)
Quarter: 2010Q3

REPORT INFORMATION
  Report Type: 
  Country: None (occurrence: None)
  Receive Date: 20100714
  Receipt Date: 20070813
  Transmission Date: 20110219
  Serious: No
  Sender: FDA-Public Use
  Company Number: US-PFIZER INC-2007052183

PATIENT
  Sex: Female
  Weight: 68.6 kg

DRUGS (10)
  1. CHANTIX [Suspect]
     Indication: SMOKING CESSATION THERAPY
     Route: 048
     Dates: start: 20070521
  2. DILANTIN [Concomitant]
  3. FOSAMAX PLUS D [Concomitant]
  4. PAXIL [Concomitant]
  5. CALTRATE [Concomitant]
  6. CENTRUM SILVER [Concomitant]
  7. VITAMIN C [Concomitant]
  8. VITAMIN B COMPLEX CAP [Concomitant]
  9. VITAMIN D [Concomitant]
  10. LUTEIN [Concomitant]

REACTIONS (2)
  - NAUSEA [None]
  - URINARY TRACT INFECTION [None]
